FAERS Safety Report 4626108-3 (Version None)
Quarter: 2005Q2

REPORT INFORMATION
  Report Type: 
  Country: None (occurrence: None)
  Receive Date: 20050404
  Receipt Date: 20050323
  Transmission Date: 20051028
  Serious: Yes (Hospitalization)
  Sender: FDA-Public Use
  Company Number: US-BRISTOL-MYERS SQUIBB COMPANY-12909818

PATIENT
  Age: 55 Year
  Sex: Male

DRUGS (5)
  1. CISPLATIN [Suspect]
     Dates: start: 20030509, end: 20030509
  2. PROTONIX [Concomitant]
     Route: 048
     Dates: start: 20030201, end: 20030611
  3. PAXIL [Concomitant]
     Route: 048
     Dates: start: 20030520, end: 20030611
  4. CEPHALEXIN [Concomitant]
     Dosage: DURATION OF THERAPY:  ^{1 MONTH^
     Route: 048
     Dates: start: 20030601, end: 20030611
  5. AMBIEN [Concomitant]
     Route: 048

REACTIONS (3)
  - DIZZINESS [None]
  - HYPERBILIRUBINAEMIA [None]
  - NEUTROPENIA [None]
